FAERS Safety Report 5293911-9 (Version None)
Quarter: 2007Q2

REPORT INFORMATION
  Report Type: 
  Country: None (occurrence: None)
  Receive Date: 20070405
  Receipt Date: 20070326
  Transmission Date: 20071010
  Serious: Yes (Death)
  Sender: FDA-Public Use
  Company Number: S05-USA-04577-01

PATIENT
  Age: 32 Year
  Sex: Male
  Weight: 104.3273 kg

DRUGS (11)
  1. LEXAPRO [Suspect]
     Indication: ANXIETY
     Dosage: 10 MG QD; PO
     Route: 048
     Dates: start: 20030930, end: 20031009
  2. LEXAPRO [Suspect]
     Indication: DEPRESSION
     Dosage: 10 MG QD; PO
     Route: 048
     Dates: start: 20030930, end: 20031009
  3. OXYCODONE HCL [Suspect]
  4. DIAZEPAM [Suspect]
     Indication: DRUG USE FOR UNKNOWN INDICATION
  5. ZOLPIDEM [Suspect]
     Indication: DRUG USE FOR UNKNOWN INDICATION
  6. NORDIAZEPAM [Suspect]
     Indication: DRUG USE FOR UNKNOWN INDICATION
  7. MORPHINE [Suspect]
  8. HYDROCODONE [Suspect]
  9. GLUCOPHAGE [Concomitant]
  10. DIOVAN HCL (VALSARTAN) [Concomitant]
  11. XANAX [Concomitant]

REACTIONS (20)
  - ABNORMAL BEHAVIOUR [None]
  - ANXIETY [None]
  - COMPLETED SUICIDE [None]
  - CONDITION AGGRAVATED [None]
  - DIARRHOEA [None]
  - DRUG TOXICITY [None]
  - FATIGUE [None]
  - FEELING ABNORMAL [None]
  - NAUSEA [None]
  - OVERDOSE [None]
  - PULMONARY CONGESTION [None]
  - PULMONARY OEDEMA [None]
  - RESTLESSNESS [None]
  - SELF MUTILATION [None]
  - SOCIAL AVOIDANT BEHAVIOUR [None]
  - SUICIDAL IDEATION [None]
  - THINKING ABNORMAL [None]
  - TREMOR [None]
  - VISCERAL CONGESTION [None]
  - VOMITING [None]
